FAERS Safety Report 23568173 (Version 1)
Quarter: 2024Q1

REPORT INFORMATION
  Report Type: Spontaneous
  Country: US (occurrence: None)
  Receive Date: 20240226
  Receipt Date: 20240226
  Transmission Date: 20240410
  Serious: No
  Sender: FDA-Public Use
  Company Number: US-Encube-000586

PATIENT
  Sex: Female

DRUGS (4)
  1. CLOBETASOL PROPIONATE [Suspect]
     Active Substance: CLOBETASOL PROPIONATE
     Indication: Rash papular
     Dates: start: 202311
  2. ESTRADIOL [Concomitant]
     Active Substance: ESTRADIOL
  3. CLOBETASOL PROPIONATE [Suspect]
     Active Substance: CLOBETASOL PROPIONATE
     Indication: Rash papular
     Dosage: FOR 3 TO 4 DAYS
  4. CLOBETASOL PROPIONATE [Suspect]
     Active Substance: CLOBETASOL PROPIONATE
     Indication: Rash papular
     Dosage: USED TO ONCE OR TWICE A WEEK

REACTIONS (5)
  - Therapeutic product effect decreased [Unknown]
  - Product physical consistency issue [Unknown]
  - Condition aggravated [Unknown]
  - Rash papular [Unknown]
  - Product use issue [Unknown]
